FAERS Safety Report 21051776 (Version 1)
Quarter: 2022Q3

REPORT INFORMATION
  Report Type: Spontaneous
  Country: US (occurrence: None)
  Receive Date: 20220706
  Receipt Date: 20220706
  Transmission Date: 20221026
  Serious: Yes (Hospitalization)
  Sender: FDA-Public Use
  Company Number: None

PATIENT
  Age: 51 Year
  Sex: Male

DRUGS (1)
  1. TASIGNA [Suspect]
     Active Substance: NILOTINIB
     Dosage: FREQUENCY : TWICE A DAY;?
     Route: 048
     Dates: start: 201207

REACTIONS (4)
  - Peripheral arterial occlusive disease [None]
  - Diabetes mellitus [None]
  - Anaemia [None]
  - Unevaluable event [None]

NARRATIVE: CASE EVENT DATE: 20120706
